FAERS Safety Report 4810187-4 (Version None)
Quarter: 2005Q4

REPORT INFORMATION
  Report Type: 
  Country: None (occurrence: None)
  Receive Date: 20051025
  Receipt Date: 20051025
  Transmission Date: 20060501
  Serious: Yes (Life-Threatening)
  Sender: FDA-Public Use
  Company Number: None

PATIENT
  Sex: Male
  Weight: 68.8 kg

DRUGS (1)
  1. THIOTEPA [Suspect]

REACTIONS (4)
  - CSF TEST ABNORMAL [None]
  - CYTOLOGY ABNORMAL [None]
  - HEADACHE [None]
  - POST PROCEDURAL COMPLICATION [None]
